FAERS Safety Report 21032965 (Version 1)
Quarter: 2022Q3

REPORT INFORMATION
  Report Type: Spontaneous
  Country: None (occurrence: US)
  Receive Date: 20220701
  Receipt Date: 20220701
  Transmission Date: 20221026
  Serious: No
  Sender: FDA-Public Use
  Company Number: US-Ajanta Pharma USA Inc.-2130479

PATIENT
  Age: 57 Year
  Sex: Female

DRUGS (1)
  1. CHOLESTYRAMINE [Suspect]
     Active Substance: CHOLESTYRAMINE
     Indication: Product used for unknown indication
     Dates: start: 202205

REACTIONS (5)
  - Foreign body in throat [Unknown]
  - Product use complaint [Unknown]
  - Product solubility abnormal [Unknown]
  - Product physical consistency issue [Unknown]
  - Product substitution issue [Unknown]

NARRATIVE: CASE EVENT DATE: 20220501
